FAERS Safety Report 17845099 (Version 1)
Quarter: 2020Q2

REPORT INFORMATION
  Report Type: Spontaneous
  Country: IE (occurrence: IE)
  Receive Date: 20200601
  Receipt Date: 20200601
  Transmission Date: 20200714
  Serious: Yes (Hospitalization)
  Sender: FDA-Public Use
  Company Number: IE-UNICHEM PHARMACEUTICALS (USA) INC-UCM202005-000653

PATIENT
  Age: 48 Year
  Sex: Female

DRUGS (3)
  1. PROPRANOLOL [Concomitant]
     Active Substance: PROPRANOLOL HYDROCHLORIDE
     Indication: HYPERTENSION
     Dosage: UNKNOWN
  2. CLONIDINE HCL [Suspect]
     Active Substance: CLONIDINE HYDROCHLORIDE
     Indication: ANXIETY
  3. CLONIDINE HCL [Suspect]
     Active Substance: CLONIDINE HYDROCHLORIDE
     Indication: DEPRESSION
     Dosage: UNKNOWN

REACTIONS (10)
  - Renal artery thrombosis [Recovered/Resolved]
  - Pneumonia aspiration [Recovered/Resolved]
  - Coma scale abnormal [Recovered/Resolved]
  - Hypertensive crisis [Recovered/Resolved]
  - Posterior reversible encephalopathy syndrome [Recovered/Resolved]
  - Drug withdrawal syndrome [Unknown]
  - Disorientation [Recovered/Resolved]
  - Acute kidney injury [Recovered/Resolved]
  - Polycythaemia [Recovered/Resolved]
  - Blood pressure increased [Recovered/Resolved]
